FAERS Safety Report 5863527-1 (Version None)
Quarter: 2008Q3

REPORT INFORMATION
  Report Type: 
  Country: None (occurrence: None)
  Receive Date: 20080828
  Receipt Date: 20080820
  Transmission Date: 20090109
  Serious: Yes (Hospitalization)
  Sender: FDA-Public Use
  Company Number: US-ELI_LILLY_AND_COMPANY-US200808004186

PATIENT
  Sex: Female
  Weight: 97.506 kg

DRUGS (15)
  1. BYETTA [Suspect]
     Indication: TYPE 2 DIABETES MELLITUS
     Dosage: 5 UG, 2/D
     Route: 058
     Dates: start: 20060401, end: 20060501
  2. BYETTA [Suspect]
     Dosage: 10 UG, 2/D
     Route: 058
     Dates: start: 20060501
  3. METFORMIN HCL [Concomitant]
     Indication: TYPE 2 DIABETES MELLITUS
     Dosage: 1000 MG, 2/D
     Route: 048
     Dates: start: 20010101
  4. LIPITOR [Concomitant]
     Indication: BLOOD CHOLESTEROL
     Dosage: 10 MG, DAILY (1/D)
  5. COUMADIN [Concomitant]
  6. COZAAR [Concomitant]
     Indication: BLOOD PRESSURE INCREASED
     Dosage: 100 MG, DAILY (1/D)
     Route: 048
  7. FLEXERIL [Concomitant]
     Indication: RESTLESS LEGS SYNDROME
     Dosage: 10 MG, 2/D
     Route: 048
  8. REQUIP [Concomitant]
     Indication: RESTLESS LEGS SYNDROME
     Dosage: 2 MG, EACH EVENING
     Route: 048
  9. LASIX [Concomitant]
     Indication: DIURETIC THERAPY
     Dosage: UNK MG, DAILY (1/D)
  10. BENTYL [Concomitant]
     Indication: IRRITABLE BOWEL SYNDROME
     Dosage: 10 MG, 3/D
  11. BONIVA [Concomitant]
     Indication: OSTEOPOROSIS
     Dosage: 150 MG, MONTHLY (1/M)
  12. SINGULAIR [Concomitant]
     Indication: HYPERSENSITIVITY
     Dosage: 10 MG, UNK
  13. NEXIUM [Concomitant]
     Indication: GASTROOESOPHAGEAL REFLUX DISEASE
     Dosage: 40 MG, DAILY (1/D)
     Route: 048
  14. LYRICA [Concomitant]
     Indication: NEURALGIA
     Dosage: 75 MG, 3/D
     Route: 048
  15. PERCOCET [Concomitant]
     Indication: PAIN
     Dosage: 7.5 MG, AS NEEDED
     Route: 048

REACTIONS (10)
  - ABDOMINAL PAIN [None]
  - CHRONIC OBSTRUCTIVE PULMONARY DISEASE [None]
  - DEEP VEIN THROMBOSIS [None]
  - GASTRITIS [None]
  - GOITRE [None]
  - IRON DEFICIENCY ANAEMIA [None]
  - NAUSEA [None]
  - PNEUMONIA [None]
  - STOMACH DISCOMFORT [None]
  - THROMBOSIS [None]
